FAERS Safety Report 15889415 (Version 2)
Quarter: 2019Q1

REPORT INFORMATION
  Report Type: Report from Study
  Country: US (occurrence: HU)
  Receive Date: 20190130
  Receipt Date: 20190205
  Transmission Date: 20190417
  Serious: Yes (Death, Hospitalization)
  Sender: FDA-Public Use
  Company Number: US-PFIZER INC-2019038995

PATIENT
  Age: 66 Year
  Sex: Male
  Weight: 75 kg

DRUGS (5)
  1. AXITINIB [Suspect]
     Active Substance: AXITINIB
     Indication: CLEAR CELL RENAL CELL CARCINOMA
     Dosage: 5 MG, CYCLIC (TWICE DAILY, 28 DAY CYCLES)
     Route: 048
     Dates: start: 20170111, end: 20170530
  2. AXITINIB [Suspect]
     Active Substance: AXITINIB
     Dosage: 2 MG, CYCLIC  (TWICE DAILY, 28 DAY CYCLES)
     Route: 048
     Dates: start: 20170823
  3. AXITINIB [Suspect]
     Active Substance: AXITINIB
     Dosage: 3 MG, CYCLIC  (TWICE DAILY, 28 DAY CYCLES)
     Route: 048
     Dates: start: 20170531, end: 20170822
  4. AMLODIPINE [Concomitant]
     Active Substance: AMLODIPINE BESYLATE
     Indication: HYPERTENSION
     Dosage: UNK
     Route: 048
     Dates: start: 2013
  5. LEVOTHYROXINE. [Concomitant]
     Active Substance: LEVOTHYROXINE
     Indication: BLOOD THYROID STIMULATING HORMONE INCREASED
     Dosage: UNK
     Route: 048
     Dates: start: 20170208

REACTIONS (1)
  - Death [Fatal]

NARRATIVE: CASE EVENT DATE: 20190116
